FAERS Safety Report 7429748-1 (Version None)
Quarter: 2011Q2

REPORT INFORMATION
  Report Type: 
  Country: None (occurrence: None)
  Receive Date: 20110421
  Receipt Date: 20110408
  Transmission Date: 20111010
  Serious: Yes (Hospitalization)
  Sender: FDA-Public Use
  Company Number: FR-PFIZER INC-2010129647

PATIENT
  Age: 66 Year
  Sex: Female

DRUGS (21)
  1. FLUOROURACIL [Suspect]
     Dosage: UNK
     Route: 042
     Dates: start: 20090626, end: 20091009
  2. ELVORINE [Suspect]
     Dosage: UNK
     Route: 042
     Dates: start: 20091109, end: 20100510
  3. NISISCO [Concomitant]
  4. FLUOROURACIL [Suspect]
     Dosage: UNK
     Route: 042
     Dates: start: 20091109, end: 20100510
  5. FLUOROURACIL [Suspect]
     Dosage: 742 MG, CYCLIC, DAY  1 AND 2, EVERY TWO WEEKS
     Route: 042
     Dates: start: 20100721, end: 20100811
  6. LEVOTHYROX [Concomitant]
  7. SOLU-MEDROL [Concomitant]
     Indication: PREMEDICATION
  8. POLARAMINE [Concomitant]
     Indication: PREMEDICATION
  9. ZOCOR [Concomitant]
  10. KARDEGIC [Concomitant]
  11. CAMPTOSAR [Suspect]
     Dosage: UNK
     Dates: start: 20091109, end: 20100510
  12. ELVORINE [Suspect]
     Dosage: 165 MG, ON DAY 1 AND 2 EVERY 2 WEEKS
     Route: 042
     Dates: start: 20100721, end: 20100811
  13. ONDANSETRON [Concomitant]
     Indication: PREMEDICATION
  14. KERLONE [Concomitant]
  15. LERCAN [Concomitant]
  16. GLUCOPHAGE [Concomitant]
  17. CAMPTOSAR [Suspect]
     Dosage: 222  MG ONCE EVERY 2 WEEKS
     Route: 042
     Dates: start: 20100721, end: 20100811
  18. ERBITUX [Concomitant]
     Dosage: 835 MG, ONCE PER CYCLE
     Route: 042
     Dates: start: 20100713, end: 20100713
  19. ELVORINE [Suspect]
     Dosage: UNK
     Route: 042
     Dates: start: 20090626, end: 20091009
  20. FLUOROURACIL [Suspect]
     Dosage: 495 MG, CYCLIC, EVERY TWO WEEKS
     Route: 040
     Dates: start: 20100721, end: 20100811
  21. FLECAINE [Concomitant]

REACTIONS (1)
  - MICROANGIOPATHIC HAEMOLYTIC ANAEMIA [None]
